FAERS Safety Report 8070437-0 (Version None)
Quarter: 2012Q1

REPORT INFORMATION
  Report Type: 
  Country: None (occurrence: None)
  Receive Date: 20120125
  Receipt Date: 20120117
  Transmission Date: 20120608
  Serious: Yes (Life-Threatening, Hospitalization, Other)
  Sender: FDA-Public Use
  Company Number: FR-BRISTOL-MYERS SQUIBB COMPANY-16360711

PATIENT
  Age: 81 Year
  Sex: Male

DRUGS (10)
  1. GLUCOPHAGE [Suspect]
     Indication: TYPE 2 DIABETES MELLITUS
     Dosage: 1 DF: 2 DF OF GLUCOPHAGE TABS 850 MG
     Route: 048
     Dates: end: 20110921
  2. DIFFU-K [Suspect]
     Dosage: 3 DF: 1DF OF DIFFU-K CAPS
     Route: 048
     Dates: end: 20110921
  3. LASIX [Suspect]
     Indication: HYPERTENSION
     Dosage: 20MG TABS
     Route: 048
     Dates: end: 20110921
  4. PLAVIX [Concomitant]
     Dosage: PLAVIX TABS 75 MG
     Route: 048
     Dates: end: 20110921
  5. EZETIMIBE [Concomitant]
     Dosage: EZETROL 10MG TABS
     Route: 048
     Dates: end: 20110921
  6. ATORVASTATIN CALCIUM [Concomitant]
     Dosage: TAHOR 80MG TABS
     Route: 048
     Dates: end: 20110921
  7. ALFUZOSIN HCL [Concomitant]
     Dosage: XATRAL PROLONGED RELEASE TABS 10MG
     Route: 048
     Dates: end: 20110921
  8. VITAMIN B1 + B6 [Concomitant]
     Dosage: 1DF: 2DF OF VITAMIN B1 + B6
     Route: 048
     Dates: end: 20110921
  9. IRBESARTAN AND HYDROCHLOROTHIAZIDE [Suspect]
     Indication: HYPERTENSION
     Dosage: COAPROVEL TABS  300/12.5MG TABS
     Route: 048
     Dates: end: 20110921
  10. LERCANIDIPINE [Suspect]
     Indication: HYPERTENSION
     Dosage: LERCAN 20MG TABS
     Route: 048
     Dates: end: 20110921

REACTIONS (6)
  - RENAL FAILURE ACUTE [None]
  - HYPOVOLAEMIC SHOCK [None]
  - HYPERKALAEMIA [None]
  - LACTIC ACIDOSIS [None]
  - OVERDOSE [None]
  - DEHYDRATION [None]
